FAERS Safety Report 6821138 (Version 3)
Quarter: 2014Q3

REPORT INFORMATION
  Report Type: Report from Study
  Country: JP (occurrence: JP)
  Receive Date: 20081125
  Receipt Date: 20140724
  Transmission Date: 20150326
  Serious: Yes (Hospitalization)
  Sender: FDA-Public Use
  Company Number: JP-BAXTER-2008BH012617

PATIENT
  Age: 63 Year
  Sex: Male
  Weight: 52.7 kg

DRUGS (19)
  1. ADVATE [Suspect]
     Active Substance: ANTIHEMOPHILIC FACTOR, HUMAN RECOMBINANT
     Indication: SURGERY
     Route: 042
     Dates: start: 20080930, end: 20081001
  2. ADVATE [Suspect]
     Active Substance: ANTIHEMOPHILIC FACTOR, HUMAN RECOMBINANT
     Route: 042
     Dates: start: 20081008, end: 20081008
  3. MOHRUS TAPE [Concomitant]
     Active Substance: KETOPROFEN
     Indication: ANALGESIC THERAPY
     Dosage: 1 TAPE
     Route: 061
     Dates: start: 20081008
  4. LOXONIN [Concomitant]
     Active Substance: LOXOPROFEN SODIUM
     Indication: OSTEOARTHRITIS
     Route: 048
     Dates: start: 20081024, end: 20081031
  5. ADVATE [Suspect]
     Active Substance: ANTIHEMOPHILIC FACTOR, HUMAN RECOMBINANT
     Indication: HAEMOSTASIS
     Route: 042
     Dates: start: 20081007, end: 20081007
  6. ADVATE [Suspect]
     Active Substance: ANTIHEMOPHILIC FACTOR, HUMAN RECOMBINANT
     Route: 042
     Dates: start: 20081002, end: 20081006
  7. SOLETON [Concomitant]
     Active Substance: ZALTOPROFEN
     Indication: POSTOPERATIVE ANALGESIA
     Route: 048
     Dates: start: 20081008, end: 20081015
  8. ADVATE [Suspect]
     Active Substance: ANTIHEMOPHILIC FACTOR, HUMAN RECOMBINANT
     Route: 042
     Dates: start: 20081015, end: 20081021
  9. DASEN [Concomitant]
     Indication: POSTOPERATIVE CARE
     Route: 048
     Dates: start: 20081008, end: 20081015
  10. ADVATE [Suspect]
     Active Substance: ANTIHEMOPHILIC FACTOR, HUMAN RECOMBINANT
     Route: 042
     Dates: start: 20081024, end: 20081110
  11. SOLITA-T3 [Concomitant]
     Active Substance: POTASSIUM CHLORIDE\SODIUM CHLORIDE\SODIUM LACTATE
     Indication: PROPHYLAXIS AGAINST DEHYDRATION
     Route: 042
     Dates: start: 20081007, end: 20081007
  12. PURSENNID [Concomitant]
     Active Substance: SENNOSIDES A AND B CALCIUM
     Indication: CONSTIPATION PROPHYLAXIS
     Route: 048
  13. GASTER [Concomitant]
     Active Substance: FAMOTIDINE
     Indication: PROPHYLAXIS
     Route: 048
     Dates: start: 20081024, end: 20081031
  14. CEFZON [Concomitant]
     Active Substance: CEFDINIR
     Indication: INFECTION PROPHYLAXIS
     Route: 048
     Dates: start: 20081027, end: 20081102
  15. SOLON [Concomitant]
     Active Substance: SOFALCONE
     Indication: GASTRITIS PROPHYLAXIS
     Route: 048
     Dates: start: 20081008, end: 20081015
  16. LACTEC [Concomitant]
     Active Substance: CALCIUM CHLORIDE ANHYDROUS\POTASSIUM CHLORIDE\SODIUM CHLORIDE\SODIUM LACTATE
     Indication: PROPHYLAXIS AGAINST DEHYDRATION
     Route: 042
     Dates: start: 20081007, end: 20081007
  17. PENICILLIN [Concomitant]
     Active Substance: PENICILLIN
     Indication: INFECTION PROPHYLAXIS
     Route: 042
     Dates: start: 20081007, end: 20081009
  18. ADVATE [Suspect]
     Active Substance: ANTIHEMOPHILIC FACTOR, HUMAN RECOMBINANT
     Route: 042
     Dates: start: 20081009, end: 20081014
  19. PANSPORIN T [Concomitant]
     Indication: INFECTION PROPHYLAXIS
     Route: 048
     Dates: start: 20081010, end: 20081015

REACTIONS (3)
  - Wound haemorrhage [Unknown]
  - Bleeding time prolonged [Unknown]
  - Factor VIII inhibition [Not Recovered/Not Resolved]

NARRATIVE: CASE EVENT DATE: 200810
